FAERS Safety Report 16150953 (Version 2)
Quarter: 2021Q3

REPORT INFORMATION
  Report Type: Report from Study
  Country: PA (occurrence: PA)
  Receive Date: 20190403
  Receipt Date: 20210804
  Transmission Date: 20211014
  Serious: Yes (Hospitalization, Other)
  Sender: FDA-Public Use
  Company Number: PHHY2019PA075063

PATIENT
  Age: 79 Year
  Sex: Male

DRUGS (1)
  1. EXFORGE [Suspect]
     Active Substance: AMLODIPINE BESYLATE\VALSARTAN
     Indication: PRODUCT USED FOR UNKNOWN INDICATION
     Dosage: STARTED (APPROX. 5 YEARS AGO)/ STOPPED (APPROX. 2 MONTHS AGO)
     Route: 065

REACTIONS (2)
  - Infarction [Unknown]
  - Cardiac disorder [Unknown]
